FAERS Safety Report 14606800 (Version 2)
Quarter: 2018Q4

REPORT INFORMATION
  Report Type: Spontaneous
  Country: IT (occurrence: IT)
  Receive Date: 20180307
  Receipt Date: 20181003
  Transmission Date: 20190204
  Serious: Yes (Life-Threatening)
  Sender: FDA-Public Use
  Company Number: IT-ORION CORPORATION ORION PHARMA-18_00003102

PATIENT
  Age: 69 Year
  Sex: Male

DRUGS (11)
  1. APROVEL [Concomitant]
     Active Substance: IRBESARTAN
     Route: 065
  2. LASIX [Concomitant]
     Active Substance: FUROSEMIDE
     Dosage: STRENGTH: 25 MG
     Route: 065
  3. LEVODOPA/CARBIDOPA/ENTACAPONE TEVA [Suspect]
     Active Substance: CARBIDOPA\ENTACAPONE\LEVODOPA
     Indication: PARKINSON^S DISEASE
     Dosage: STRENGTH: 150/37/200 MG
     Route: 048
     Dates: start: 20170722, end: 20180117
  4. NEUPRO [Concomitant]
     Active Substance: ROTIGOTINE
     Route: 065
  5. NOVORAPID [Concomitant]
     Active Substance: INSULIN ASPART
     Dosage: STRENGTH:100U/ML
     Route: 065
  6. STALEVO [Suspect]
     Active Substance: CARBIDOPA\ENTACAPONE\LEVODOPA
     Indication: PARKINSON^S DISEASE
     Route: 048
  7. BISOPROLOL FUMARATE. [Concomitant]
     Active Substance: BISOPROLOL FUMARATE
  8. REQUIP [Concomitant]
     Active Substance: ROPINIROLE HYDROCHLORIDE
     Dosage: STRENGTH: 4 MG
     Route: 065
  9. COUMADIN [Concomitant]
     Active Substance: WARFARIN SODIUM
     Route: 065
  10. SINEMET [Concomitant]
     Active Substance: CARBIDOPA\LEVODOPA
  11. KOMEZOL [Concomitant]
     Dosage: STRENGTH: 20 MG
     Route: 065

REACTIONS (2)
  - Laryngeal oedema [Recovered/Resolved]
  - Pruritus generalised [Recovered/Resolved]

NARRATIVE: CASE EVENT DATE: 20180117
